FAERS Safety Report 16820281 (Version 1)
Quarter: 2019Q3

REPORT INFORMATION
  Report Type: Spontaneous
  Country: RU (occurrence: RU)
  Receive Date: 20190918
  Receipt Date: 20190918
  Transmission Date: 20191005
  Serious: No
  Sender: FDA-Public Use
  Company Number: RU-BEH-2019106924

PATIENT
  Age: 17 Year
  Sex: Male
  Weight: 40 kg

DRUGS (1)
  1. PRIVIGEN [Suspect]
     Active Substance: HUMAN IMMUNOGLOBULIN G
     Indication: IMMUNODEFICIENCY COMMON VARIABLE
     Dosage: 150 GRAM
     Route: 042
     Dates: start: 20190816, end: 20190816

REACTIONS (4)
  - Tension [Recovered/Resolved]
  - Pyrexia [Recovered/Resolved]
  - Anxiety [Recovered/Resolved]
  - Chills [Recovered/Resolved]

NARRATIVE: CASE EVENT DATE: 20190816
